FAERS Safety Report 6984893 (Version 2)
Quarter: 2014Q2

REPORT INFORMATION
  Report Type: Spontaneous
  Country: US (occurrence: US)
  Receive Date: 20090501
  Receipt Date: 20140415
  Transmission Date: 20141212
  Serious: Yes (Hospitalization)
  Sender: FDA-Public Use
  Company Number: US-ALEXION-A200800391

PATIENT
  Age: 63 Year
  Sex: Female

DRUGS (6)
  1. SOLIRIS [Suspect]
     Indication: PAROXYSMAL NOCTURNAL HAEMOGLOBINURIA
     Dosage: 600 MG, UNK
     Route: 042
     Dates: start: 20081023, end: 2008
  2. SOLIRIS [Suspect]
     Dosage: 900 MG, Q2W
     Route: 042
     Dates: start: 20081120
  3. PREDNISONE [Concomitant]
     Dosage: 5 MG, QD
     Route: 048
  4. FOLIC ACID [Concomitant]
     Dosage: UNK
     Route: 048
  5. TYLENOL                            /00020001/ [Concomitant]
     Dosage: UNK
     Route: 048
  6. ANTIBIOTICS [Concomitant]

REACTIONS (9)
  - Neutropenia [Not Recovered/Not Resolved]
  - Gout [Recovering/Resolving]
  - Sepsis [Recovered/Resolved]
  - Anaemia [Not Recovered/Not Resolved]
  - Dyspnoea [Recovered/Resolved]
  - Sluggishness [Unknown]
  - Vulvovaginal mycotic infection [Recovered/Resolved]
  - Streptococcal infection [Unknown]
  - Arthralgia [Unknown]
